FAERS Safety Report 9853361 (Version 1)
Quarter: 2014Q1

REPORT INFORMATION
  Report Type: Report from Study
  Country: CA (occurrence: CA)
  Receive Date: 20140129
  Receipt Date: 20140129
  Transmission Date: 20141002
  Serious: Yes (Death)
  Sender: FDA-Public Use
  Company Number: PHHY2014CA009750

PATIENT
  Age: 63 Year
  Sex: Male

DRUGS (2)
  1. SANDOSTATIN LAR [Suspect]
     Indication: PANCREATIC CARCINOMA METASTATIC
     Dosage: 30 MG, EVERY 4 WEEKS
     Route: 030
     Dates: start: 20130717
  2. SANDOSTATIN LAR [Suspect]
     Indication: MALIGNANT PERITONEAL NEOPLASM

REACTIONS (1)
  - Death [Fatal]
